FAERS Safety Report 24830784 (Version 1)
Quarter: 2025Q1

REPORT INFORMATION
  Report Type: Spontaneous
  Country: US (occurrence: None)
  Receive Date: 20250110
  Receipt Date: 20250110
  Transmission Date: 20250408
  Serious: Yes (Other)
  Sender: FDA-CTU
  Company Number: None

PATIENT
  Sex: Female

DRUGS (11)
  1. ENBREL [Suspect]
     Active Substance: ETANERCEPT
     Indication: Psoriatic arthropathy
     Dosage: OTHER QUANTITY : 1 PEN UNDER SKIN ;?FREQUENCY : WEEKLY;?
     Route: 058
     Dates: start: 20211105
  2. ASPIRIN [Concomitant]
     Active Substance: ASPIRIN
  3. CHLORHEX GLU SOL [Concomitant]
  4. DEXILANT [Concomitant]
     Active Substance: DEXLANSOPRAZOLE
  5. ENBREL SRCLK [Concomitant]
  6. FOLIC ACID [Concomitant]
     Active Substance: FOLIC ACID
  7. HUMIRA [Concomitant]
     Active Substance: ADALIMUMAB
  8. HYDROCORTISO CRE [Concomitant]
  9. HYDROXYCHLOROQUINE [Concomitant]
     Active Substance: HYDROXYCHLOROQUINE
  10. METHOCARBAMOL [Concomitant]
     Active Substance: METHOCARBAMOL
  11. METHOTREXATE [Concomitant]
     Active Substance: METHOTREXATE

REACTIONS (4)
  - Drug ineffective [None]
  - Pain [None]
  - Surgery [None]
  - Intentional dose omission [None]
